FAERS Safety Report 16228789 (Version 4)
Quarter: 2019Q3

REPORT INFORMATION
  Report Type: Spontaneous
  Country: GB (occurrence: GB)
  Receive Date: 20190423
  Receipt Date: 20190715
  Transmission Date: 20191004
  Serious: Yes (Hospitalization)
  Sender: FDA-Public Use
  Company Number: GB-JNJFOC-20190428067

PATIENT
  Age: 41 Year
  Sex: Female
  Weight: 112 kg

DRUGS (3)
  1. METOJECT [Suspect]
     Active Substance: METHOTREXATE SODIUM
     Route: 065
  2. SIMPONI [Suspect]
     Active Substance: GOLIMUMAB
     Indication: RHEUMATOID ARTHRITIS
     Route: 058
     Dates: start: 201604
  3. SIMPONI [Suspect]
     Active Substance: GOLIMUMAB
     Route: 058
     Dates: start: 20190626

REACTIONS (1)
  - Folliculitis [Recovering/Resolving]

NARRATIVE: CASE EVENT DATE: 201812
